FAERS Safety Report 7008110-X (Version None)
Quarter: 2010Q3

REPORT INFORMATION
  Report Type: 
  Country: None (occurrence: None)
  Receive Date: 20100922
  Receipt Date: 20100914
  Transmission Date: 20110219
  Serious: Yes (Other)
  Sender: FDA-Public Use
  Company Number: DE-US-EMD SERONO, INC.-7015210

PATIENT
  Sex: Male

DRUGS (2)
  1. REBIF [Suspect]
     Indication: MULTIPLE SCLEROSIS
     Route: 058
     Dates: start: 20091230, end: 20100101
  2. REBIF [Suspect]
     Dates: start: 20100302, end: 20100406

REACTIONS (6)
  - ANTINUCLEAR ANTIBODY INCREASED [None]
  - AUTOIMMUNE HEPATITIS [None]
  - COLLAGEN DISORDER [None]
  - LUNG NEOPLASM [None]
  - POLYARTHRITIS [None]
  - SYSTEMIC INFLAMMATORY RESPONSE SYNDROME [None]
